FAERS Safety Report 11540837 (Version 1)
Quarter: 2015Q3

REPORT INFORMATION
  Report Type: Spontaneous
  Country: IN (occurrence: IN)
  Receive Date: 20150923
  Receipt Date: 20150923
  Transmission Date: 20151125
  Serious: Yes (Hospitalization)
  Sender: FDA-Public Use
  Company Number: IN-UNICHEM LABORATORIES LIMITED-UCM201508-000727

PATIENT
  Age: 23 Year
  Sex: Male

DRUGS (4)
  1. METRONIDAZOLE. [Suspect]
     Active Substance: METRONIDAZOLE
  2. DYNAPER [Concomitant]
     Route: 030
  3. CEFAPERAZONE/SULBACTAM [Suspect]
     Active Substance: CEFOPERAZONE SODIUM\SULBACTAM
     Route: 042
  4. GENTAMICIN. [Concomitant]
     Active Substance: GENTAMICIN

REACTIONS (2)
  - Drug resistance [Unknown]
  - Urinary tract infection enterococcal [Recovering/Resolving]
